FAERS Safety Report 23040778 (Version 3)
Quarter: 2023Q4

REPORT INFORMATION
  Report Type: Spontaneous
  Country: JP (occurrence: JP)
  Receive Date: 20231006
  Receipt Date: 20231030
  Transmission Date: 20240110
  Serious: Yes (Other)
  Sender: FDA-Public Use
  Company Number: JP-GLAXOSMITHKLINE-JP2023JPN120051

PATIENT

DRUGS (8)
  1. DAPRODUSTAT [Suspect]
     Active Substance: DAPRODUSTAT
     Indication: Nephrogenic anaemia
     Dosage: 4 MG, 1D
     Route: 048
     Dates: start: 20230710, end: 20230730
  2. NIFEDIPINE [Concomitant]
     Active Substance: NIFEDIPINE
     Indication: Hypertension
     Dosage: 20 MG, 1D
     Route: 048
     Dates: start: 20230522
  3. OLMESARTAN MEDOXOMIL [Concomitant]
     Active Substance: OLMESARTAN MEDOXOMIL
     Indication: Hypertension
     Dosage: 10 MG, 1D
     Route: 048
     Dates: start: 20230522
  4. MAGNESIUM OXIDE [Concomitant]
     Active Substance: MAGNESIUM OXIDE
     Indication: Constipation
     Dosage: 330 MG, BID
     Route: 048
     Dates: start: 20230522
  5. HOCHUEKKITO EXTRACT GRANULES [Concomitant]
     Indication: Asthenia
     Dosage: 2.5 G, BID
     Route: 048
     Dates: start: 20230522
  6. ZOLPIDEM TARTRATE [Concomitant]
     Active Substance: ZOLPIDEM TARTRATE
     Indication: Insomnia
     Dosage: 5 MG, 1D
     Route: 048
     Dates: start: 20230523
  7. FEXOFENADINE HYDROCHLORIDE [Concomitant]
     Active Substance: FEXOFENADINE HYDROCHLORIDE
     Indication: Drug eruption
     Dosage: 10 MG, BID
     Route: 048
     Dates: start: 20230508
  8. AZOSEMIDE [Concomitant]
     Active Substance: AZOSEMIDE
     Indication: Cardiac failure chronic
     Dosage: 30 MG, 1D
     Route: 048
     Dates: start: 20230522

REACTIONS (8)
  - Pancreatitis acute [Recovering/Resolving]
  - Amylase increased [Recovering/Resolving]
  - Abdominal pain [Recovered/Resolved]
  - Hepatic function abnormal [Unknown]
  - Pyrexia [Unknown]
  - Abdominal pain upper [Unknown]
  - Nausea [Unknown]
  - Vomiting [Unknown]

NARRATIVE: CASE EVENT DATE: 20230718
